FAERS Safety Report 23824546 (Version 1)
Quarter: 2024Q2

REPORT INFORMATION
  Report Type: Spontaneous
  Country: CO (occurrence: CO)
  Receive Date: 20240507
  Receipt Date: 20240507
  Transmission Date: 20240716
  Serious: Yes (Other)
  Sender: FDA-Public Use
  Company Number: CO-GLAXOSMITHKLINE-CO2023AMR161448

PATIENT

DRUGS (1)
  1. NUCALA [Suspect]
     Active Substance: MEPOLIZUMAB
     Indication: Asthma
     Dosage: 100 MG, Q4W
     Route: 042
     Dates: start: 20221219

REACTIONS (4)
  - Asphyxia [Not Recovered/Not Resolved]
  - Anxiety [Unknown]
  - Product use issue [Unknown]
  - Drug ineffective [Unknown]
